FAERS Safety Report 5057196-0 (Version None)
Quarter: 2006Q3

REPORT INFORMATION
  Report Type: 
  Country: None (occurrence: None)
  Receive Date: 20060721
  Receipt Date: 20050606
  Transmission Date: 20061208
  Serious: No
  Sender: FDA-Public Use
  Company Number: US-GLAXOSMITHKLINE-A0561390A

PATIENT
  Age: 55 Year
  Sex: Female

DRUGS (4)
  1. AVANDIA [Suspect]
     Dosage: 8MG PER DAY
     Route: 048
     Dates: start: 20010101, end: 20050602
  2. CELEBREX [Concomitant]
  3. LISINOPRIL [Concomitant]
     Route: 065
  4. TOPROL-XL [Concomitant]

REACTIONS (1)
  - OEDEMA [None]
